FAERS Safety Report 12489307 (Version 1)
Quarter: 2016Q2

REPORT INFORMATION
  Report Type: Spontaneous
  Country: US (occurrence: US)
  Receive Date: 20160622
  Receipt Date: 20160622
  Transmission Date: 20160815
  Serious: Yes (Other)
  Sender: FDA-Public Use
  Company Number: US-LPDUSPRD-20160534

PATIENT
  Age: 33 Year
  Sex: Female

DRUGS (2)
  1. RADIATION [Concomitant]
     Active Substance: RADIATION THERAPY
     Dosage: DOSE UNKNOWN
     Route: 065
  2. DEXAMETHASONE SODIUM PHOSPHATE INJECTION, USP (4901-25) [Suspect]
     Active Substance: DEXAMETHASONE SODIUM PHOSPHATE
     Dosage: DOSE UNKNOWN
     Route: 065

REACTIONS (1)
  - Botryomycosis [Unknown]
